FAERS Safety Report 9704838 (Version 1)
Quarter: 2013Q4

REPORT INFORMATION
  Report Type: Spontaneous
  Country: US (occurrence: US)
  Receive Date: 20131122
  Receipt Date: 20131122
  Transmission Date: 20140711
  Serious: Yes (Other)
  Sender: FDA-Public Use
  Company Number: US-ASTRAZENECA-2013SE84674

PATIENT
  Age: 52 Year
  Sex: Female
  Weight: 117.9 kg

DRUGS (1)
  1. PRILOSEC [Suspect]
     Indication: GASTROOESOPHAGEAL REFLUX DISEASE
     Route: 048

REACTIONS (5)
  - Hiatus hernia [Unknown]
  - Dyspepsia [Unknown]
  - Pain [Unknown]
  - Adverse event [Unknown]
  - Drug ineffective [Unknown]
